FAERS Safety Report 6440314-7 (Version None)
Quarter: 2009Q4

REPORT INFORMATION
  Report Type: 
  Country: None (occurrence: None)
  Receive Date: 20091113
  Receipt Date: 20091103
  Transmission Date: 20100525
  Serious: Yes (Other)
  Sender: FDA-Public Use
  Company Number: US-PFIZER INC-2009274859

PATIENT
  Age: 90 Year
  Sex: Female

DRUGS (5)
  1. DETROL [Suspect]
     Indication: HYPERTONIC BLADDER
     Dosage: 5 MG, 1X/DAY
     Dates: start: 20090501, end: 20090501
  2. TOVIAZ [Suspect]
     Dosage: 8 MG, 1X/DAY
  3. VESICARE [Suspect]
     Indication: HYPERTONIC BLADDER
     Dosage: 5 MG, 1X/DAY
     Route: 048
     Dates: end: 20090923
  4. XALATAN [Concomitant]
     Indication: OPEN ANGLE GLAUCOMA
  5. TYLENOL (CAPLET) [Concomitant]

REACTIONS (4)
  - CIRCUMSTANCE OR INFORMATION CAPABLE OF LEADING TO MEDICATION ERROR [None]
  - PHARYNGEAL OEDEMA [None]
  - SWOLLEN TONGUE [None]
  - UNEVALUABLE EVENT [None]
